FAERS Safety Report 7723325-0 (Version None)
Quarter: 2011Q3

REPORT INFORMATION
  Report Type: 
  Country: None (occurrence: None)
  Receive Date: 20110901
  Receipt Date: 20110901
  Transmission Date: 20111222
  Serious: Yes (Hospitalization)
  Sender: FDA-Public Use
  Company Number: None

PATIENT
  Age: 81 Year
  Sex: Female

DRUGS (1)
  1. CLOFARABINE [Suspect]
     Indication: ACUTE MYELOID LEUKAEMIA
     Dosage: 20 MG
     Route: 048
     Dates: start: 20110815, end: 20110819

REACTIONS (7)
  - MENTAL STATUS CHANGES [None]
  - PANCYTOPENIA [None]
  - HYPOCALCAEMIA [None]
  - FEBRILE NEUTROPENIA [None]
  - COAGULOPATHY [None]
  - HYPOKALAEMIA [None]
  - METABOLIC ENCEPHALOPATHY [None]
